FAERS Safety Report 21172438 (Version 1)
Quarter: 2022Q3

REPORT INFORMATION
  Report Type: Spontaneous
  Country: ES (occurrence: ES)
  Receive Date: 20220804
  Receipt Date: 20220804
  Transmission Date: 20221027
  Serious: Yes (Other)
  Sender: FDA-Public Use
  Company Number: ES-PFIZER INC-202201032167

PATIENT
  Age: 65 Year
  Sex: Female

DRUGS (1)
  1. MINOXIDIL [Suspect]
     Active Substance: MINOXIDIL
     Indication: Alopecia
     Dosage: 1 MG
     Route: 048

REACTIONS (5)
  - Product preparation error [Recovered/Resolved]
  - Accidental overdose [Recovered/Resolved]
  - Ischaemic stroke [Recovered/Resolved]
  - Syncope [Recovered/Resolved]
  - Off label use [Unknown]
